FAERS Safety Report 5914403-7 (Version None)
Quarter: 2008Q4

REPORT INFORMATION
  Report Type: 
  Country: None (occurrence: None)
  Receive Date: 20081007
  Receipt Date: 20080923
  Transmission Date: 20090506
  Serious: Yes (Disabling, Congenital Anomaly)
  Sender: FDA-Public Use
  Company Number: 2008S1017274

PATIENT
  Sex: Male

DRUGS (3)
  1. TAMOXIFEN CITRATE [Suspect]
     Indication: BREAST CANCER
     Dosage: 20 MG; DAILY; TRANSPLACENTAL
     Route: 064
  2. TACROLIMUS [Concomitant]
  3. ABACAVIR [Concomitant]

REACTIONS (11)
  - CLEFT PALATE [None]
  - GLOSSOPTOSIS [None]
  - MATERNAL DRUGS AFFECTING FOETUS [None]
  - MICROGENIA [None]
  - MICROGNATHIA [None]
  - NEONATAL DISORDER [None]
  - OBSTRUCTIVE AIRWAYS DISORDER [None]
  - PIERRE ROBIN SYNDROME [None]
  - PREMATURE BABY [None]
  - RETROGNATHIA [None]
  - TALIPES [None]
